FAERS Safety Report 8066400-6 (Version None)
Quarter: 2012Q1

REPORT INFORMATION
  Report Type: 
  Country: None (occurrence: None)
  Receive Date: 20120124
  Receipt Date: 20120124
  Transmission Date: 20120608
  Serious: Yes (Life-Threatening, Hospitalization)
  Sender: FDA-Public Use
  Company Number: None

PATIENT
  Age: 51 Year
  Sex: Male
  Weight: 58.967 kg

DRUGS (1)
  1. CRESTOR [Suspect]
     Indication: BLOOD CHOLESTEROL INCREASED
     Dosage: 1 TABLET
     Route: 048
     Dates: start: 20111004, end: 20111025

REACTIONS (7)
  - DYSSTASIA [None]
  - LIVER DISORDER [None]
  - PAIN IN EXTREMITY [None]
  - LOSS OF CONTROL OF LEGS [None]
  - RENAL DISORDER [None]
  - MUSCULAR WEAKNESS [None]
  - CHROMATURIA [None]
